FAERS Safety Report 8324811-5 (Version None)
Quarter: 2012Q2

REPORT INFORMATION
  Report Type: 
  Country: None (occurrence: None)
  Receive Date: 20120501
  Receipt Date: 20120427
  Transmission Date: 20120825
  Serious: Yes (Other)
  Sender: FDA-Public Use
  Company Number: PHHY2012FR036748

PATIENT
  Age: 75 Year
  Sex: Female

DRUGS (6)
  1. CYMBALTA [Concomitant]
  2. OROCAL VITAMIN D [Concomitant]
  3. CLONAZEPAM [Concomitant]
  4. RABEPRAZOLE SODIUM [Concomitant]
  5. FENOFIBRATE [Concomitant]
  6. ZOLEDRONOC ACID [Suspect]
     Indication: OSTEOPOROSIS
     Route: 042
     Dates: start: 20090101

REACTIONS (1)
  - FEMORAL NECK FRACTURE [None]
